FAERS Safety Report 10246150 (Version 2)
Quarter: 2014Q2

REPORT INFORMATION
  Report Type: Spontaneous
  Country: US (occurrence: US)
  Receive Date: 20140619
  Receipt Date: 20140619
  Transmission Date: 20141212
  Serious: Yes (Other)
  Sender: FDA-Public Use
  Company Number: US-THROMBOGENICS INC.-JET-2014-243

PATIENT
  Age: 73 Year
  Sex: Male

DRUGS (1)
  1. JETREA [Suspect]
     Indication: PRODUCT USED FOR UNKNOWN INDICATION
     Dosage: 0.125 MG, ONE TIME DOSE
     Route: 031
     Dates: start: 20140310, end: 20140310

REACTIONS (2)
  - Visual acuity reduced [Not Recovered/Not Resolved]
  - Retinal oedema [Recovered/Resolved]
